FAERS Safety Report 6268377-2 (Version None)
Quarter: 2009Q3

REPORT INFORMATION
  Report Type: 
  Country: None (occurrence: None)
  Receive Date: 20090715
  Receipt Date: 20090707
  Transmission Date: 20100115
  Serious: Yes (Death, Hospitalization)
  Sender: FDA-Public Use
  Company Number: DE-ROCHE-586452

PATIENT
  Age: 68 Year
  Sex: Female
  Weight: 91 kg

DRUGS (13)
  1. CAPECITABINE [Suspect]
     Dosage: 1250 MG/M2
     Route: 048
     Dates: start: 20080625, end: 20080708
  2. CAPECITABINE [Suspect]
     Route: 048
  3. CAPECITABINE [Suspect]
     Dosage: 500 MG, 3-0-3
     Route: 048
     Dates: end: 20081124
  4. L-THYROXIN [Concomitant]
     Indication: HYPOTHYROIDISM
     Dosage: FREQUENCY REPORTED: 1
     Route: 048
  5. IRBESARTAN [Concomitant]
     Indication: HYPERTENSION
     Dosage: FREQUENCY REPORTED: 1.
     Route: 048
  6. ZOMETA [Concomitant]
     Indication: BONE DISORDER
     Route: 042
     Dates: start: 20070326
  7. FENTANYL [Concomitant]
     Indication: PAIN
     Dosage: DRUG NAME REPORTED: DUROGESIC PFLASTER, FREQUENCY: 1.
     Route: 062
     Dates: start: 20080709
  8. OMEPRAZOLE [Concomitant]
     Indication: NAUSEA
     Dosage: FREQUENCY 1, DRUG NAME: OMEPRAXOL
     Dates: start: 20080625, end: 20080714
  9. NOVAMINSULFON [Concomitant]
     Indication: PAIN
     Dosage: FREQUENCY 3
     Dates: start: 20080625, end: 20080709
  10. MCP [Concomitant]
     Indication: NAUSEA
     Dosage: 1 AMPUOLE, FREQUENCY 1
     Dates: start: 20080708, end: 20080708
  11. MCP [Concomitant]
     Dates: start: 20080714, end: 20080714
  12. ZOLEDRONIC ACID [Concomitant]
     Dates: start: 20080601
  13. CAELYX [Concomitant]

REACTIONS (10)
  - ANAEMIA [None]
  - BLOOD BILIRUBIN INCREASED [None]
  - DIZZINESS [None]
  - FATIGUE [None]
  - GAMMA-GLUTAMYLTRANSFERASE INCREASED [None]
  - GENERAL PHYSICAL HEALTH DETERIORATION [None]
  - HEPATIC FAILURE [None]
  - JAUNDICE [None]
  - MALIGNANT NEOPLASM PROGRESSION [None]
  - THROMBOCYTOPENIA [None]
